FAERS Safety Report 15722253 (Version 1)
Quarter: 2018Q4

REPORT INFORMATION
  Report Type: Spontaneous
  Country: CA (occurrence: CA)
  Receive Date: 20181214
  Receipt Date: 20181214
  Transmission Date: 20190205
  Serious: Yes (Disabling)
  Sender: FDA-Public Use
  Company Number: CA-GLAXOSMITHKLINE-CA2018GSK225919

PATIENT
  Age: 32 Year
  Sex: Female

DRUGS (1)
  1. VALACYCLOVIR [Suspect]
     Active Substance: VALACYCLOVIR HYDROCHLORIDE
     Indication: INFECTION
     Dosage: UNK UNK, TID
     Route: 048

REACTIONS (2)
  - Herpes virus infection [Recovering/Resolving]
  - Drug ineffective [Unknown]
